FAERS Safety Report 4398586-9 (Version None)
Quarter: 2004Q3

REPORT INFORMATION
  Report Type: 
  Country: None (occurrence: None)
  Receive Date: 20040712
  Receipt Date: 20040624
  Transmission Date: 20050211
  Serious: Yes (Hospitalization)
  Sender: FDA-Public Use
  Company Number: 2004SE03622

PATIENT
  Age: 71 Year
  Sex: Female

DRUGS (10)
  1. SELOKEN [Suspect]
     Dosage: 50 MG PO
     Route: 048
     Dates: start: 20040401
  2. FELODIPINE [Suspect]
     Indication: ESSENTIAL HYPERTENSION
     Dosage: 5 MG DAILY PO
     Route: 048
     Dates: start: 20040401, end: 20040525
  3. SIMVASTATIN [Concomitant]
  4. NITROMEX [Concomitant]
  5. PULMICORT [Concomitant]
  6. CARDIZEM [Concomitant]
  7. EMTHEXAT [Concomitant]
  8. SUSCARD [Concomitant]
  9. MONKET [Concomitant]
  10. OESTRIOL ^NM PHARMA^ [Concomitant]

REACTIONS (4)
  - DYSPNOEA [None]
  - PALPITATIONS [None]
  - SINUS TACHYCARDIA [None]
  - TREMOR [None]
